FAERS Safety Report 23197096 (Version 1)
Quarter: 2023Q4

REPORT INFORMATION
  Report Type: Spontaneous
  Country: ZA (occurrence: None)
  Receive Date: 20231117
  Receipt Date: 20231117
  Transmission Date: 20240109
  Serious: Yes (Death)
  Sender: FDA-Public Use
  Company Number: 2023A259505

PATIENT
  Age: 78 Year
  Sex: Female

DRUGS (8)
  1. BUDESONIDE\FORMOTEROL FUMARATE DIHYDRATE [Suspect]
     Active Substance: BUDESONIDE\FORMOTEROL FUMARATE DIHYDRATE
     Indication: Asthma
     Dosage: 160 UG/INHAL, UNKNOWN UNKNOWN
     Route: 055
  2. IVABRADINE HYDROCHLORIDE [Concomitant]
     Active Substance: IVABRADINE HYDROCHLORIDE
     Indication: Arrhythmia
     Dosage: 5.0MG UNKNOWN
  3. ESCITALOPRAM [Concomitant]
     Active Substance: ESCITALOPRAM OXALATE
     Indication: Depression
     Dosage: 20.0MG UNKNOWN
  4. ZOLPIDEM TARTRATE [Concomitant]
     Active Substance: ZOLPIDEM TARTRATE
     Indication: Middle insomnia
     Dosage: 10.0MG UNKNOWN
  5. AMLOC [Concomitant]
     Indication: Hypertension
     Dosage: 5.0MG UNKNOWN
  6. ATORVASTATIN [Concomitant]
     Active Substance: ATORVASTATIN
     Indication: Blood cholesterol
     Dosage: 10.0MG UNKNOWN
  7. ALPRAZOLAM [Concomitant]
     Active Substance: ALPRAZOLAM
     Indication: Anxiety
  8. AMITRIPTYLINE HYDROCHLORIDE [Concomitant]
     Active Substance: AMITRIPTYLINE HYDROCHLORIDE
     Indication: Depression
     Dosage: 25.0MG UNKNOWN

REACTIONS (1)
  - Death [Fatal]

NARRATIVE: CASE EVENT DATE: 20231106
